FAERS Safety Report 4630445-6 (Version None)
Quarter: 2005Q2

REPORT INFORMATION
  Report Type: 
  Country: None (occurrence: None)
  Receive Date: 20050406
  Receipt Date: 20050322
  Transmission Date: 20051028
  Serious: Yes (Other)
  Sender: FDA-Public Use
  Company Number: TRP_0090_2005

PATIENT
  Age: 48 Year
  Sex: Female

DRUGS (2)
  1. RIBASPHERE [Suspect]
     Indication: HEPATITIS C
     Dates: start: 20041207
  2. PEG-INTRON [Suspect]
     Indication: HEPATITIS C
     Dates: start: 20041207

REACTIONS (1)
  - MEDICATION TAMPERING [None]
